FAERS Safety Report 4496905-6 (Version None)
Quarter: 2004Q4

REPORT INFORMATION
  Report Type: 
  Country: None (occurrence: None)
  Receive Date: 20040928
  Receipt Date: 20040621
  Transmission Date: 20050328
  Serious: No
  Sender: FDA-Public Use
  Company Number: 04P-163-0257923-00

PATIENT
  Age: 75 Year
  Sex: Female
  Weight: 73.4827 kg

DRUGS (14)
  1. HUMIRA [Suspect]
     Indication: RHEUMATOID ARTHRITIS
     Dosage: 40 MG, 1 IN 2 WK, SUBCUTANEOUS : 40 MG, 1 IN 1 WK ,SUBCUTANEOUS
     Route: 058
     Dates: start: 20040301, end: 20040601
  2. HUMIRA [Suspect]
     Indication: RHEUMATOID ARTHRITIS
     Dosage: 40 MG, 1 IN 2 WK, SUBCUTANEOUS : 40 MG, 1 IN 1 WK ,SUBCUTANEOUS
     Route: 058
     Dates: start: 20040601
  3. PREDNISONE [Concomitant]
  4. TAMOXIFEN CITRATE [Concomitant]
  5. MULTI-VITAMINS [Concomitant]
  6. DYAZIDE [Concomitant]
  7. CITALOPRAM HYDROBROMIDE [Concomitant]
  8. ZOLPIDEM TARTRATE [Concomitant]
  9. GABAPENTIN [Concomitant]
  10. ASCORBIC ACID [Concomitant]
  11. TOCOPHEROL CONCENTRATE CAP [Concomitant]
  12. FISH OIL [Concomitant]
  13. CYANOCOBALAMIN [Concomitant]
  14. POTASSIUM [Concomitant]

REACTIONS (4)
  - ARTHRALGIA [None]
  - MUSCULOSKELETAL DISCOMFORT [None]
  - PARAESTHESIA [None]
  - SENSORY DISTURBANCE [None]
